FAERS Safety Report 23414000 (Version 1)
Quarter: 2024Q1

REPORT INFORMATION
  Report Type: Report from Study
  Country: TN (occurrence: TN)
  Receive Date: 20240117
  Receipt Date: 20240117
  Transmission Date: 20240410
  Serious: Yes (Hospitalization)
  Sender: FDA-Public Use
  Company Number: TN-ABBVIE-5590154

PATIENT
  Age: 70 Year
  Sex: Female

DRUGS (4)
  1. HUMIRA [Suspect]
     Active Substance: ADALIMUMAB
     Indication: Crohn^s disease
     Dosage: FORM STRENGTH: 40 MILLIGRAM
     Route: 058
     Dates: start: 20180101, end: 202308
  2. HUMIRA [Suspect]
     Active Substance: ADALIMUMAB
     Indication: Rheumatoid arthritis
  3. ACTRAPID [Concomitant]
     Active Substance: INSULIN HUMAN
     Indication: Diabetes mellitus
  4. alg?sic [Concomitant]
     Indication: Renal pain

REACTIONS (10)
  - Intestinal obstruction [Recovered/Resolved]
  - Ocular icterus [Recovered/Resolved]
  - Nephrolithiasis [Not Recovered/Not Resolved]
  - Influenza [Recovered/Resolved]
  - Hepatic steatosis [Not Recovered/Not Resolved]
  - Anaemia [Recovered/Resolved]
  - Anal fistula [Recovered/Resolved]
  - Skin abrasion [Unknown]
  - Malnutrition [Recovered/Resolved]
  - Pancreatic disorder [Unknown]
